FAERS Safety Report 6315660-8 (Version None)
Quarter: 2009Q3

REPORT INFORMATION
  Report Type: 
  Country: None (occurrence: None)
  Receive Date: 20090818
  Receipt Date: 20090807
  Transmission Date: 20100115
  Serious: Yes (Hospitalization)
  Sender: FDA-Public Use
  Company Number: TCI2009A03183

PATIENT
  Age: 61 Year
  Sex: Male

DRUGS (8)
  1. LANSAP 800(LANSOPRAZOLE,CLARITHROMYCIN, AMOXICILLIN) [Suspect]
     Indication: IDIOPATHIC THROMBOCYTOPENIC PURPURA
     Dosage: 1 CARD (0.5 CARD, 2 IN 1 D) PER ORAL
     Route: 048
     Dates: start: 20090727, end: 20090729
  2. LIPITOR [Suspect]
     Dosage: PER ORAL
     Route: 048
     Dates: end: 20090730
  3. BASEN (VOGLIBOSE) [Concomitant]
  4. PLAVIX [Concomitant]
  5. ASPIRIN [Concomitant]
  6. ISOSORBIDE MONONITRATE [Concomitant]
  7. CARVEDILOL [Concomitant]
  8. FAMOTIDINE [Concomitant]

REACTIONS (5)
  - DRUG INTERACTION [None]
  - HAEMODIALYSIS [None]
  - HYPOGLYCAEMIA [None]
  - RENAL FAILURE [None]
  - URINE OUTPUT DECREASED [None]
